FAERS Safety Report 8427315-4 (Version None)
Quarter: 2012Q2

REPORT INFORMATION
  Report Type: 
  Country: None (occurrence: None)
  Receive Date: 20120611
  Receipt Date: 20120604
  Transmission Date: 20120825
  Serious: Yes (Other)
  Sender: FDA-Public Use
  Company Number: BR-PFIZER INC-2012097366

PATIENT
  Age: 50 Year
  Sex: Male
  Weight: 75 kg

DRUGS (4)
  1. ALPRAZOLAM [Concomitant]
     Indication: ANXIETY
     Dosage: 1 TABLET ONCE DAILY
     Dates: start: 20110101
  2. PRISTIQ [Suspect]
     Indication: ANXIETY
  3. PRISTIQ [Suspect]
     Indication: DEPRESSION
     Dosage: 50 MG, 1X/DAY
     Route: 048
     Dates: start: 20010914
  4. LITHIUM CARBONATE [Concomitant]
     Dosage: 150 MG (HALF TABLET OF 300MG), 1X/DAY

REACTIONS (2)
  - OBESITY SURGERY [None]
  - ANXIETY [None]
